FAERS Safety Report 6866807-6 (Version None)
Quarter: 2010Q2

REPORT INFORMATION
  Report Type: 
  Country: None (occurrence: None)
  Receive Date: 20100610
  Receipt Date: 20100420
  Transmission Date: 20101027
  Serious: No
  Sender: FDA-Public Use
  Company Number: 2010SP013645

PATIENT
  Sex: Female

DRUGS (7)
  1. SAPHRIS [Suspect]
     Indication: DRUG USE FOR UNKNOWN INDICATION
     Dosage: 5 MG;HS;SL
     Dates: start: 20100222, end: 20100223
  2. LAMICTAL [Concomitant]
  3. DEPAKOTE [Concomitant]
  4. RISPERDAL [Concomitant]
  5. LEXAPRO [Concomitant]
  6. CONCERTA [Concomitant]
  7. LORAZEPAM [Concomitant]

REACTIONS (6)
  - DEPRESSION [None]
  - INAPPROPRIATE SCHEDULE OF DRUG ADMINISTRATION [None]
  - IRRITABILITY [None]
  - NEURALGIA [None]
  - PAIN IN EXTREMITY [None]
  - UNDERDOSE [None]
